FAERS Safety Report 6726236-2 (Version None)
Quarter: 2010Q2

REPORT INFORMATION
  Report Type: 
  Country: None (occurrence: None)
  Receive Date: 20100514
  Receipt Date: 20100503
  Transmission Date: 20101027
  Serious: Yes (Hospitalization, Other)
  Sender: FDA-Public Use
  Company Number: US-PFIZER INC-2010052774

PATIENT
  Sex: Female
  Weight: 53.061 kg

DRUGS (15)
  1. NEURONTIN [Suspect]
     Indication: VAGINAL CANCER
     Dosage: UNK
     Route: 048
  2. LYRICA [Suspect]
     Indication: PAIN
     Dosage: 75 MG (2 CAPSULES AT NIGHT)
     Route: 048
  3. LYRICA [Suspect]
     Indication: SLEEP DISORDER
  4. LYRICA [Suspect]
     Indication: MUSCLE RELAXANT THERAPY
  5. LYRICA [Suspect]
     Indication: NEOPLASM MALIGNANT
  6. XANAX [Suspect]
     Indication: BIPOLAR DISORDER
     Dosage: 1 MG, UNK
     Route: 048
  7. METHADONE [Suspect]
     Indication: VAGINAL CANCER
     Dosage: UNK
  8. REQUIP [Concomitant]
     Indication: RESTLESS LEGS SYNDROME
     Dosage: 2 MG, 1X/DAY
     Route: 048
  9. PROZAC [Concomitant]
     Indication: BIPOLAR DISORDER
     Dosage: 40 MG, 1X/DAY
     Route: 048
  10. FOSAMAX [Concomitant]
     Indication: BIPOLAR DISORDER
     Dosage: 100 MG, 1X/DAY
     Route: 048
  11. FLONASE [Concomitant]
     Indication: HYPERSENSITIVITY
     Dosage: 50 MG, 1X/DAY
     Route: 048
  12. SINGULAIR [Concomitant]
     Indication: HYPERSENSITIVITY
     Dosage: 10 MG, 1X/DAY
     Route: 048
  13. LASIX [Concomitant]
     Indication: DIURETIC THERAPY
     Dosage: 40 MG, UNK
     Route: 048
  14. ALBUTEROL [Concomitant]
     Indication: DYSPNOEA
     Dosage: UNK
  15. HYDROCODONE [Concomitant]
     Indication: PAIN
     Dosage: 7.5 MG, TWO IN THE MORNING AND 1 EVERY FOUR HOURS THEREAFTER
     Route: 048

REACTIONS (2)
  - COMA [None]
  - PAIN [None]
